FAERS Safety Report 5056021-1 (Version None)
Quarter: 2006Q3

REPORT INFORMATION
  Report Type: 
  Country: None (occurrence: None)
  Receive Date: 20060717
  Receipt Date: 20060717
  Transmission Date: 20061208
  Serious: No
  Sender: FDA-Public Use
  Company Number: None

PATIENT
  Sex: Female

DRUGS (1)
  1. PPD INTRADERMAL TEST 5TU PER 0.1ML PARKDALE [Suspect]
     Indication: TUBERCULIN TEST
     Dosage: 0.1 ML ONCE ID
     Route: 023
     Dates: start: 20060201, end: 20060201

REACTIONS (2)
  - INJECTION SITE ERYTHEMA [None]
  - INJECTION SITE PRURITUS [None]
